FAERS Safety Report 25352879 (Version 1)
Quarter: 2025Q2

REPORT INFORMATION
  Report Type: Spontaneous
  Country: ES (occurrence: ES)
  Receive Date: 20250523
  Receipt Date: 20250523
  Transmission Date: 20250717
  Serious: Yes (Hospitalization, Other)
  Sender: SANOFI AVENTIS
  Company Number: ES-Accord-280344

PATIENT
  Age: 77 Year
  Sex: Male
  Weight: 85.7 kg

DRUGS (34)
  1. OXALIPLATIN [Suspect]
     Active Substance: OXALIPLATIN
     Indication: Diffuse large B-cell lymphoma stage III
     Dosage: 100 MG/M2, Q15D
     Dates: start: 20220831, end: 20220914
  2. GEMCITABINE HYDROCHLORIDE [Suspect]
     Active Substance: GEMCITABINE HYDROCHLORIDE
     Indication: Diffuse large B-cell lymphoma stage III
     Dosage: 1000 MG/M2, Q15D
     Dates: start: 20220831, end: 20220914
  3. EPCORITAMAB [Concomitant]
     Active Substance: EPCORITAMAB
     Indication: Diffuse large B-cell lymphoma stage III
     Route: 058
     Dates: start: 20220831, end: 20220831
  4. EPCORITAMAB [Concomitant]
     Active Substance: EPCORITAMAB
     Route: 058
     Dates: start: 20220907, end: 20220907
  5. EPCORITAMAB [Concomitant]
     Active Substance: EPCORITAMAB
     Route: 058
     Dates: start: 20220914, end: 20220914
  6. ONDANSETRON HYDROCHLORIDE [Concomitant]
     Active Substance: ONDANSETRON HYDROCHLORIDE
     Indication: Premedication
     Dates: start: 20220914, end: 20220924
  7. ONDANSETRON HYDROCHLORIDE [Concomitant]
     Active Substance: ONDANSETRON HYDROCHLORIDE
     Dates: start: 202208, end: 20220924
  8. DEXCHLORPHENIRAMINE MALEATE [Concomitant]
     Active Substance: DEXCHLORPHENIRAMINE MALEATE
     Indication: Premedication
     Dates: start: 20220914, end: 20220914
  9. ACETAMINOPHEN [Concomitant]
     Active Substance: ACETAMINOPHEN
     Indication: Premedication
     Dates: start: 20220914, end: 20220914
  10. DEXAMETHASONE [Concomitant]
     Active Substance: DEXAMETHASONE
     Indication: Prophylaxis
     Dates: start: 20220914
  11. DEXAMETHASONE [Concomitant]
     Active Substance: DEXAMETHASONE
     Route: 048
     Dates: start: 20220915, end: 20220917
  12. ACYCLOVIR [Concomitant]
     Active Substance: ACYCLOVIR
     Dates: start: 202204, end: 20220924
  13. AMLODIPINE BESYLATE [Concomitant]
     Active Substance: AMLODIPINE BESYLATE
     Dates: start: 2017, end: 20220906
  14. ASPIRIN [Concomitant]
     Active Substance: ASPIRIN
     Dates: start: 2021, end: 20220919
  15. BROMAZEPAM [Concomitant]
     Active Substance: BROMAZEPAM
     Dates: start: 2018, end: 20220919
  16. CARTEOLOL [CARTEOLOL HYDROCHLORIDE] [Concomitant]
     Dates: start: 2017, end: 20220919
  17. LEUCOVORIN CALCIUM [Concomitant]
     Active Substance: LEUCOVORIN CALCIUM
     Dates: start: 202204, end: 20220919
  18. INDAPAMIDE [Concomitant]
     Active Substance: INDAPAMIDE
     Dates: start: 2017, end: 20220919
  19. LATANOPROST [Concomitant]
     Active Substance: LATANOPROST
     Dates: start: 202204, end: 20220919
  20. POLYETHYLENE GLYCOLS [Concomitant]
     Active Substance: POLYETHYLENE GLYCOLS
     Dates: start: 20200526, end: 20220919
  21. OMEPRAZOLE [Concomitant]
     Active Substance: OMEPRAZOLE
     Dates: start: 2018, end: 20220919
  22. ONDANSETRON HYDROCHLORIDE [Concomitant]
     Active Substance: ONDANSETRON HYDROCHLORIDE
     Dates: start: 202208, end: 20220914
  23. SULFAMETHOXAZOLE [Concomitant]
     Active Substance: SULFAMETHOXAZOLE
     Dates: start: 202204, end: 20220919
  24. TRIMETHOPRIM [Concomitant]
     Active Substance: TRIMETHOPRIM
     Dates: start: 202204, end: 20220919
  25. HYDROCORTISONE SODIUM PHOSPHATE [Concomitant]
     Active Substance: HYDROCORTISONE SODIUM PHOSPHATE
     Dates: start: 20220914, end: 20220914
  26. METHYLPREDNISOLONE [Concomitant]
     Active Substance: METHYLPREDNISOLONE
     Dates: start: 20220914, end: 20220914
  27. BEMIPARIN SODIUM [Concomitant]
     Active Substance: BEMIPARIN SODIUM
     Dates: start: 20220920, end: 20220924
  28. CEFEPIME HYDROCHLORIDE [Concomitant]
     Active Substance: CEFEPIME HYDROCHLORIDE
     Dates: start: 20220920, end: 20220922
  29. ENOXAPARIN SODIUM [Concomitant]
     Active Substance: ENOXAPARIN SODIUM
     Dates: start: 20220914, end: 20220919
  30. LORAZEPAM [Concomitant]
     Active Substance: LORAZEPAM
     Dates: start: 20220920, end: 20220924
  31. METOCLOPRAMIDE HYDROCHLORIDE [Concomitant]
     Active Substance: METOCLOPRAMIDE HYDROCHLORIDE
     Dates: start: 20220920, end: 20220924
  32. ACETAMINOPHEN [Concomitant]
     Active Substance: ACETAMINOPHEN
     Dates: start: 20220920, end: 20220924
  33. POTASSIUM CHLORIDE [Concomitant]
     Active Substance: POTASSIUM CHLORIDE
     Dates: start: 20220922, end: 20220924
  34. PROTEIN [Concomitant]
     Active Substance: PROTEIN
     Dates: start: 20220921, end: 20220924

REACTIONS (2)
  - Cytokine release syndrome [Unknown]
  - Condition aggravated [Recovered/Resolved]

NARRATIVE: CASE EVENT DATE: 20220918
